FAERS Safety Report 8841612 (Version 2)
Quarter: 2012Q4

REPORT INFORMATION
  Report Type: 
  Country: US (occurrence: US)
  Receive Date: 20121015
  Receipt Date: 20121120
  Transmission Date: 20130627
  Serious: Yes (Other)
  Sender: FDA-Public Use
  Company Number: US-PFIZER INC-2012253709

PATIENT
  Age: 46 Year
  Sex: Female

DRUGS (2)
  1. ZOLOFT [Suspect]
     Dosage: 50 mg, 1x/day (100mg 1/2 tab qd)
  2. WELLBUTRIN SR [Concomitant]
     Dosage: UNK

REACTIONS (2)
  - Autoimmune disorder [Unknown]
  - Glucose tolerance impaired [Unknown]
